FAERS Safety Report 7860096-1 (Version None)
Quarter: 2011Q4

REPORT INFORMATION
  Report Type: 
  Country: None (occurrence: None)
  Receive Date: 20111027
  Receipt Date: 20111021
  Transmission Date: 20120403
  Serious: Yes (Other)
  Sender: FDA-Public Use
  Company Number: FR-TEVA-306491ISR

PATIENT
  Sex: Male

DRUGS (1)
  1. AZILECT [Suspect]
     Route: 048

REACTIONS (1)
  - HEPATIC FAILURE [None]
